FAERS Safety Report 6338609-0 (Version None)
Quarter: 2009Q3

REPORT INFORMATION
  Report Type: 
  Country: None (occurrence: None)
  Receive Date: 20090903
  Receipt Date: 20070606
  Transmission Date: 20100115
  Serious: Yes (Other)
  Sender: FDA-Public Use
  Company Number: US-ASTRAZENECA-2006UW12088

PATIENT
  Age: 18649 Day
  Sex: Female
  Weight: 128.4 kg

DRUGS (30)
  1. SEROQUEL [Suspect]
     Route: 048
     Dates: start: 20020101
  2. SEROQUEL [Suspect]
     Dosage: 25 AT BEDTIME
     Route: 048
     Dates: start: 20040429, end: 20070613
  3. HALDOL [Concomitant]
     Dates: start: 19980101
  4. RISPERDAL [Concomitant]
     Dates: start: 20000101
  5. GEODON [Concomitant]
     Dosage: 80 IN THE MORNING, 40 AT NOON AND 80 AT BEDTIME
     Dates: start: 20040429
  6. LEXAPRO [Concomitant]
     Dates: start: 20040429
  7. ATENOLOL [Concomitant]
     Dates: start: 20040429
  8. LASIX [Concomitant]
     Dates: start: 20040429
  9. POTASSIUM CHLORIDE [Concomitant]
     Dates: start: 20040429
  10. NEURONTIN [Concomitant]
     Dosage: 300-2400
     Dates: start: 20040429
  11. PROTONIX [Concomitant]
     Dates: start: 20040429
  12. TRAZODONE [Concomitant]
     Dosage: 100-150 MG
     Dates: start: 20021216
  13. VICODIN [Concomitant]
     Indication: PAIN
     Dosage: 5/500 1-2 EVERY 6 HOURS
     Dates: start: 20040429
  14. SPIRONOLACTONE [Concomitant]
     Dosage: 25 MG 2 TABS 2 TIMES DAILY
     Dates: start: 20040429
  15. HYDROCODONE [Concomitant]
     Dosage: 1-2 TABLETS DAILY 6 HOURS AS NEEDED
     Dates: start: 20040811
  16. PERIACTIN [Concomitant]
     Dosage: INITIALLY 4 MG AT NIGHT AND INCREASED TO 8 MG AT NIGHT
     Dates: start: 20070606
  17. VISTARIL [Concomitant]
     Indication: ANXIETY
     Dosage: 50 MG 6 HOURS DAILY
     Dates: start: 20070606
  18. COGENTIN [Concomitant]
     Dates: start: 19950822
  19. ZYPREXA [Concomitant]
     Dates: start: 20021216
  20. AMARYL [Concomitant]
     Dates: start: 20021216
  21. ASPIRIN [Concomitant]
     Dates: start: 20021216
  22. TENORMIN [Concomitant]
     Dates: start: 20021216
  23. POTASSIUM CHLORIDE [Concomitant]
     Dates: start: 20021216
  24. PROVERA [Concomitant]
     Dates: start: 20021216
  25. GLUCOPHAGE [Concomitant]
     Dates: start: 20021216
  26. ZANAFLEX [Concomitant]
     Dates: start: 20021216
  27. EFFEXOR [Concomitant]
     Dates: start: 20021216
  28. LIPITOR [Concomitant]
     Dates: start: 20041004
  29. AVANDAMET [Concomitant]
     Dosage: 2/500 TWO PILLS TWO TIMES A DAY
     Dates: start: 20041004
  30. INSULIN [Concomitant]
     Dates: start: 20021219

REACTIONS (4)
  - DIABETES MELLITUS [None]
  - DIABETIC NEUROPATHY [None]
  - NEUROPATHY PERIPHERAL [None]
  - TYPE 2 DIABETES MELLITUS [None]
